FAERS Safety Report 9789511 (Version 2)
Quarter: 2014Q1

REPORT INFORMATION
  Report Type: Spontaneous
  Country: US (occurrence: US)
  Receive Date: 20131231
  Receipt Date: 20140226
  Transmission Date: 20141002
  Serious: No
  Sender: FDA-Public Use
  Company Number: US-BIOGENIDEC-2013BI123796

PATIENT
  Age: 48 Year
  Sex: Female

DRUGS (2)
  1. AVONEX [Suspect]
     Indication: MULTIPLE SCLEROSIS
     Route: 030
     Dates: start: 20131201
  2. AVONEX [Suspect]
     Indication: MULTIPLE SCLEROSIS
     Route: 030
     Dates: start: 20131206

REACTIONS (6)
  - Muscle twitching [Recovered/Resolved]
  - Gait disturbance [Recovered/Resolved]
  - Wrong technique in drug usage process [Recovered/Resolved]
  - Sensation of heaviness [Recovered/Resolved with Sequelae]
  - Anxiety [Not Recovered/Not Resolved]
  - Pain in extremity [Recovered/Resolved with Sequelae]
